FAERS Safety Report 10084743 (Version 2)
Quarter: 2014Q2

REPORT INFORMATION
  Report Type: Spontaneous
  Country: HR (occurrence: HR)
  Receive Date: 20140417
  Receipt Date: 20140523
  Transmission Date: 20141212
  Serious: Yes (Other)
  Sender: FDA-Public Use
  Company Number: HR-GLAXOSMITHKLINE-B0986496A

PATIENT
  Age: 76 Year
  Sex: Female

DRUGS (3)
  1. RYTHMONORM [Suspect]
     Indication: PRODUCT USED FOR UNKNOWN INDICATION
     Dosage: 150MG TWICE PER DAY
     Route: 048
     Dates: start: 20140220, end: 20140305
  2. MEBEVERINE HYDROCHLORIDE [Concomitant]
     Dosage: 1CAP TWICE PER DAY
     Route: 048
     Dates: start: 2013, end: 20140305
  3. CONCOR [Concomitant]
     Dosage: 1TAB PER DAY
     Route: 048
     Dates: start: 201301

REACTIONS (4)
  - Eyelid oedema [Recovered/Resolved]
  - Erythema of eyelid [Recovered/Resolved]
  - Insomnia [Recovered/Resolved]
  - Headache [Recovered/Resolved]
